FAERS Safety Report 16760872 (Version 1)
Quarter: 2019Q4

REPORT INFORMATION
  Report Type: Spontaneous
  Country: US (occurrence: US)
  Receive Date: 20190830
  Receipt Date: 20190830
  Transmission Date: 20200122
  Serious: Yes (Hospitalization)
  Sender: FDA-Public Use
  Company Number: None

PATIENT
  Age: 13 Year
  Sex: Female

DRUGS (15)
  1. MIRALAX [Concomitant]
     Active Substance: POLYETHYLENE GLYCOL 3350
  2. HYDROCHLOROTHIAZIDE. [Concomitant]
     Active Substance: HYDROCHLOROTHIAZIDE
  3. LEVALBUTEROL. [Concomitant]
     Active Substance: LEVALBUTEROL
  4. VIGABATRIN. [Suspect]
     Active Substance: VIGABATRIN
     Indication: SEIZURE
     Route: 048
     Dates: start: 20180328
  5. CATAPRES [Concomitant]
     Active Substance: CLONIDINE HYDROCHLORIDE
  6. VITAMIN D [Concomitant]
     Active Substance: VITAMIN D NOS
  7. ABILIFY [Concomitant]
     Active Substance: ARIPIPRAZOLE
  8. ZONEGRAN [Concomitant]
     Active Substance: ZONISAMIDE
  9. MULTIVITAMIN [Concomitant]
     Active Substance: VITAMINS
  10. ONFI [Concomitant]
     Active Substance: CLOBAZAM
  11. ROBINUL [Concomitant]
     Active Substance: GLYCOPYRROLATE
  12. ZANTAC [Concomitant]
     Active Substance: RANITIDINE HYDROCHLORIDE
  13. CLARITIN [Concomitant]
     Active Substance: LORATADINE
  14. POTASSIUM CITRATE. [Concomitant]
     Active Substance: POTASSIUM CITRATE
  15. PULMICORT TURBUHALER [Concomitant]
     Active Substance: BUDESONIDE

REACTIONS (2)
  - Renal failure [None]
  - Therapy cessation [None]

NARRATIVE: CASE EVENT DATE: 20190702
